FAERS Safety Report 23533375 (Version 1)
Quarter: 2024Q1

REPORT INFORMATION
  Report Type: Spontaneous
  Country: CN (occurrence: CN)
  Receive Date: 20240216
  Receipt Date: 20240216
  Transmission Date: 20240409
  Serious: Yes (Life-Threatening, Hospitalization, Other)
  Sender: FDA-Public Use
  Company Number: CN-JNJFOC-20240219724

PATIENT

DRUGS (2)
  1. DARZALEX [Suspect]
     Active Substance: DARATUMUMAB
     Indication: Product used for unknown indication
     Route: 041
  2. DARATUMUMAB [Suspect]
     Active Substance: DARATUMUMAB
     Indication: Product used for unknown indication
     Route: 065

REACTIONS (8)
  - Haemolysis [Unknown]
  - Cardio-respiratory arrest [Unknown]
  - Disseminated intravascular coagulation [Unknown]
  - Infusion related reaction [Unknown]
  - Hyperfibrinolysis [Unknown]
  - Cerebellar haemorrhage [Unknown]
  - Hypertension [Unknown]
  - Haematuria [Unknown]
